FAERS Safety Report 5765445-6 (Version None)
Quarter: 2008Q2

REPORT INFORMATION
  Report Type: 
  Country: None (occurrence: None)
  Receive Date: 20080611
  Receipt Date: 20080603
  Transmission Date: 20081010
  Serious: Yes (Hospitalization, Congenital Anomaly)
  Sender: FDA-Public Use
  Company Number: A0678478A

PATIENT
  Sex: Female

DRUGS (4)
  1. PAXIL [Suspect]
     Indication: DEPRESSION
     Dosage: 10MG PER DAY
     Dates: start: 19960701, end: 20000101
  2. VITAMIN TAB [Concomitant]
  3. AMOXICILLIN [Concomitant]
  4. TYLENOL [Concomitant]

REACTIONS (23)
  - ANOMALOUS PULMONARY VENOUS CONNECTION [None]
  - ARTERIOSCLEROTIC RETINOPATHY [None]
  - ARTERIOVENOUS MALFORMATION [None]
  - ASPLENIA [None]
  - ATRIAL SEPTAL DEFECT [None]
  - ATRIOVENTRICULAR SEPTAL DEFECT [None]
  - CONGENITAL CARDIOVASCULAR ANOMALY [None]
  - DEXTROCARDIA [None]
  - DIAPHRAGMATIC PARALYSIS [None]
  - DOUBLE OUTLET RIGHT VENTRICLE [None]
  - DRUG EXPOSURE DURING PREGNANCY [None]
  - FLUID RETENTION [None]
  - GASTROINTESTINAL MALFORMATION [None]
  - HEART DISEASE CONGENITAL [None]
  - HIATUS HERNIA [None]
  - OLIGOHYDRAMNIOS [None]
  - PERSISTENT FOETAL CIRCULATION [None]
  - PLEURAL EFFUSION [None]
  - PREMATURE LABOUR [None]
  - PULMONARY VALVE STENOSIS [None]
  - SITUS INVERSUS [None]
  - TRANSPOSITION OF THE GREAT VESSELS [None]
  - VENTRICULAR SEPTAL DEFECT [None]
